FAERS Safety Report 5494304-1 (Version None)
Quarter: 2007Q4

REPORT INFORMATION
  Report Type: 
  Country: None (occurrence: None)
  Receive Date: 20071015
  Receipt Date: 20070801
  Transmission Date: 20080405
  Serious: No
  Sender: FDA-Public Use
  Company Number: 2007SP002713

PATIENT
  Age: 61 Year
  Sex: Female
  Weight: 61.2356 kg

DRUGS (3)
  1. LUNESTA [Suspect]
     Indication: SOMNOLENCE
     Dosage: 3 MG; ORAL
     Route: 048
     Dates: start: 20070727, end: 20070701
  2. SYNTHROID [Concomitant]
  3. INSULIN [Concomitant]

REACTIONS (8)
  - BLOOD GLUCOSE INCREASED [None]
  - DYSGEUSIA [None]
  - INFLUENZA LIKE ILLNESS [None]
  - INSOMNIA [None]
  - LYMPHADENOPATHY [None]
  - MEDICATION ERROR [None]
  - TREMOR [None]
  - VISUAL DISTURBANCE [None]
